FAERS Safety Report 24842747 (Version 1)
Quarter: 2025Q1

REPORT INFORMATION
  Report Type: Spontaneous
  Country: PE (occurrence: PE)
  Receive Date: 20250115
  Receipt Date: 20250115
  Transmission Date: 20250408
  Serious: Yes (Other)
  Sender: SANDOZ
  Company Number: PE-002147023-NVSC2024PE067552

PATIENT
  Age: 13 Year
  Sex: Male
  Weight: 74 kg

DRUGS (11)
  1. ALBUTEROL [Suspect]
     Active Substance: ALBUTEROL
     Indication: Asthma
     Route: 065
  2. ALBUTEROL [Suspect]
     Active Substance: ALBUTEROL
     Indication: Bronchospasm
  3. XOLAIR [Suspect]
     Active Substance: OMALIZUMAB
     Indication: Asthma
     Route: 065
  4. XOLAIR [Suspect]
     Active Substance: OMALIZUMAB
     Dosage: 450 MG (3 INJECTIONS), BIW
     Route: 058
     Dates: start: 20240406
  5. XOLAIR [Suspect]
     Active Substance: OMALIZUMAB
     Indication: Asthma
     Dosage: 450 MG, EVERY 15 DAYS
     Route: 058
     Dates: start: 20240601, end: 20240615
  6. XOLAIR [Suspect]
     Active Substance: OMALIZUMAB
     Route: 058
     Dates: start: 20230311
  7. XOLAIR [Suspect]
     Active Substance: OMALIZUMAB
     Route: 065
  8. DESLORATADINE [Concomitant]
     Active Substance: DESLORATADINE
     Indication: Product used for unknown indication
     Route: 065
  9. FLUTICASONE [Concomitant]
     Active Substance: FLUTICASONE
     Indication: Product used for unknown indication
     Dosage: 1 PUFF, EVERY 12 HOURS
     Route: 065
     Dates: start: 2016
  10. PREDNISONE [Concomitant]
     Active Substance: PREDNISONE
     Indication: Product used for unknown indication
     Dosage: 1 1/2, 1 AT 8 AND 1/2 AT 4PM FOR 5 DAYS
     Route: 065
     Dates: start: 2016
  11. PREDNISONE [Concomitant]
     Active Substance: PREDNISONE
     Dosage: UNK
     Route: 065
     Dates: start: 2016

REACTIONS (21)
  - Asthmatic crisis [Unknown]
  - Syncope [Unknown]
  - Inflammation [Recovering/Resolving]
  - Mobility decreased [Unknown]
  - Dengue fever [Recovered/Resolved with Sequelae]
  - Bone pain [Unknown]
  - Pyrexia [Unknown]
  - Spirometry abnormal [Unknown]
  - Influenza [Unknown]
  - Decreased appetite [Unknown]
  - Abdominal pain [Unknown]
  - Dermatitis allergic [Unknown]
  - Myalgia [Unknown]
  - Attention deficit hyperactivity disorder [Unknown]
  - Eye allergy [Unknown]
  - Rhinitis [Unknown]
  - Bronchospasm [Unknown]
  - Nausea [Unknown]
  - Diarrhoea [Unknown]
  - Constipation [Unknown]
  - Headache [Unknown]

NARRATIVE: CASE EVENT DATE: 20240324
